FAERS Safety Report 8106300-6 (Version None)
Quarter: 2012Q1

REPORT INFORMATION
  Report Type: 
  Country: None (occurrence: None)
  Receive Date: 20120130
  Receipt Date: 20120116
  Transmission Date: 20120608
  Serious: Yes (Hospitalization, Other)
  Sender: FDA-Public Use
  Company Number: AUR-APL-2012-00561

PATIENT
  Age: 58 Year
  Sex: Male
  Weight: 90 kg

DRUGS (8)
  1. METOCLOPRAMIDE [Suspect]
     Indication: IMPAIRED GASTRIC EMPTYING
     Dosage: 20 MG (10 MG, 2 IN 1 D), ORAL
     Route: 048
  2. RABEPRAZOLE SODIUM [Concomitant]
  3. NEBIVOLOL [Concomitant]
  4. SERTRALINE HYDROCHLORIDE [Suspect]
     Indication: PRODUCT USED FOR UNKNOWN INDICATION
  5. VALSARTAN [Concomitant]
  6. MESALAMINE [Concomitant]
  7. CLINDAMYCIN [Concomitant]
  8. VENLAFAXINE [Suspect]
     Indication: PRODUCT USED FOR UNKNOWN INDICATION

REACTIONS (31)
  - CONFUSIONAL STATE [None]
  - HYPOTENSION [None]
  - ABDOMINAL TENDERNESS [None]
  - ANION GAP [None]
  - OVERDOSE [None]
  - LETHARGY [None]
  - MUSCULOSKELETAL STIFFNESS [None]
  - HAEMATOCRIT DECREASED [None]
  - RESTLESSNESS [None]
  - ABNORMAL BEHAVIOUR [None]
  - DYSARTHRIA [None]
  - TACHYCARDIA [None]
  - CEREBRAL ISCHAEMIA [None]
  - CONVULSION [None]
  - MUSCLE RIGIDITY [None]
  - RENAL FAILURE ACUTE [None]
  - SINUS TACHYCARDIA [None]
  - OXYGEN SATURATION DECREASED [None]
  - METABOLIC ACIDOSIS [None]
  - DEHYDRATION [None]
  - NEUROLEPTIC MALIGNANT SYNDROME [None]
  - CLOSTRIDIUM DIFFICILE COLITIS [None]
  - DIARRHOEA [None]
  - TELANGIECTASIA [None]
  - BUNDLE BRANCH BLOCK LEFT [None]
  - DELIRIUM [None]
  - MENTAL STATUS CHANGES [None]
  - DELUSION [None]
  - FEELING JITTERY [None]
  - HAEMOGLOBIN DECREASED [None]
  - CEREBRAL DISORDER [None]
